FAERS Safety Report 9938294 (Version 1)
Quarter: 2014Q1

REPORT INFORMATION
  Report Type: Spontaneous
  Country: US (occurrence: US)
  Receive Date: 20140303
  Receipt Date: 20140303
  Transmission Date: 20141002
  Serious: No
  Sender: FDA-Public Use
  Company Number: US-ABBVIE-13P-163-1031230-00

PATIENT
  Age: 54 Year
  Sex: Female

DRUGS (4)
  1. HUMIRA [Suspect]
     Indication: RHEUMATOID ARTHRITIS
     Route: 058
     Dates: start: 2006, end: 20121219
  2. PREDNISONE [Concomitant]
     Indication: ARTHRALGIA
     Dates: start: 2012
  3. PREDNISONE [Concomitant]
     Indication: JOINT SWELLING
  4. ARAVA [Concomitant]
     Indication: PRODUCT USED FOR UNKNOWN INDICATION

REACTIONS (1)
  - Rheumatoid arthritis [Not Recovered/Not Resolved]
